FAERS Safety Report 9112268 (Version 1)
Quarter: 2013Q1

REPORT INFORMATION
  Report Type: Spontaneous
  Country: US (occurrence: US)
  Receive Date: 20130219
  Receipt Date: 20130219
  Transmission Date: 20140127
  Serious: No
  Sender: FDA-Public Use
  Company Number: US-BRISTOL-MYERS SQUIBB COMPANY-16850711

PATIENT
  Age: 55 Year
  Sex: Female
  Weight: 92.51 kg

DRUGS (9)
  1. ORENCIA [Suspect]
     Indication: RHEUMATOID ARTHRITIS
     Dosage: IV FOR 2 YEARS
     Route: 058
     Dates: start: 20120724
  2. METHOTREXATE [Suspect]
     Dosage: 1 DF: 5 TABS,METHOTREXATE 2.5MG
  3. PREDNISONE [Suspect]
  4. ZYRTEC [Concomitant]
  5. NEXIUM [Concomitant]
  6. FOLIC ACID [Concomitant]
  7. FLAXSEED OIL [Concomitant]
  8. TRAMADOL [Concomitant]
  9. FLEXERIL [Concomitant]

REACTIONS (1)
  - Urinary tract infection [Recovered/Resolved]
